FAERS Safety Report 8581862-3 (Version None)
Quarter: 2012Q3

REPORT INFORMATION
  Report Type: 
  Country: None (occurrence: None)
  Receive Date: 20120809
  Receipt Date: 20120410
  Transmission Date: 20120928
  Serious: Yes (Other)
  Sender: FDA-Public Use
  Company Number: CO-PFIZER INC-2012192224

PATIENT
  Age: 82 Year
  Sex: Male

DRUGS (4)
  1. METOPROLOL TARTRATE [Concomitant]
     Dosage: 50 MG, 2X/DAY
  2. LOSARTAN [Concomitant]
     Dosage: 50 MG, 2X/DAY
  3. LIPITOR [Suspect]
     Dosage: 10 MG, 1X/DAY
     Route: 048
  4. FUROSEMIDE [Concomitant]
     Dosage: 40 MG, 1X/DAY
     Route: 048

REACTIONS (3)
  - HEADACHE [None]
  - DYSPNOEA EXERTIONAL [None]
  - OEDEMA [None]
